FAERS Safety Report 25513535 (Version 1)
Quarter: 2025Q3

REPORT INFORMATION
  Report Type: Spontaneous
  Country: US (occurrence: US)
  Receive Date: 20250703
  Receipt Date: 20250703
  Transmission Date: 20251020
  Serious: No
  Sender: RADIUS PHARM
  Company Number: US-RADIUS HEALTH INC.-2024US008774

PATIENT
  Sex: Female

DRUGS (1)
  1. TYMLOS [Suspect]
     Active Substance: ABALOPARATIDE
     Indication: Osteoporosis
     Dosage: 80 MICROGRAM, QD
     Route: 058
     Dates: start: 2024

REACTIONS (10)
  - Nausea [Unknown]
  - Abdominal pain upper [Unknown]
  - Rhinorrhoea [Unknown]
  - Hyperhidrosis [Unknown]
  - Tongue biting [Unknown]
  - Intentional dose omission [Unknown]
  - Weight increased [Unknown]
  - Tongue injury [Unknown]
  - Weight decreased [Unknown]
  - Frustration tolerance decreased [Unknown]

NARRATIVE: CASE EVENT DATE: 20240101
